FAERS Safety Report 11060297 (Version 2)
Quarter: 2015Q3

REPORT INFORMATION
  Report Type: Report from Study
  Country: US (occurrence: US)
  Receive Date: 20150423
  Receipt Date: 20150722
  Transmission Date: 20151125
  Serious: No
  Sender: FDA-Public Use
  Company Number: US-AMGEN-USASL2015031010

PATIENT
  Age: 87 Year
  Sex: Female

DRUGS (1)
  1. KYPROLIS [Suspect]
     Active Substance: CARFILZOMIB
     Indication: PLASMA CELL MYELOMA
     Dosage: UNK, 2 TIMES/WK
     Route: 042
     Dates: start: 20150305

REACTIONS (7)
  - Gait disturbance [Not Recovered/Not Resolved]
  - Muscle spasms [Recovering/Resolving]
  - Hypoaesthesia [Recovering/Resolving]
  - Bone pain [Recovered/Resolved]
  - Tinnitus [Not Recovered/Not Resolved]
  - Chills [Recovering/Resolving]
  - Nausea [Not Recovered/Not Resolved]

NARRATIVE: CASE EVENT DATE: 2015
